FAERS Safety Report 4718783-X (Version None)
Quarter: 2005Q3

REPORT INFORMATION
  Report Type: 
  Country: None (occurrence: None)
  Receive Date: 20050719
  Receipt Date: 20050707
  Transmission Date: 20060218
  Serious: Yes (Hospitalization, Other)
  Sender: FDA-Public Use
  Company Number: 2005063773

PATIENT
  Sex: Female

DRUGS (1)
  1. ZYVOX [Suspect]
     Indication: LOWER RESPIRATORY TRACT INFECTION
     Dosage: 600 MG

REACTIONS (7)
  - ASTHENIA [None]
  - BURNING SENSATION [None]
  - DISORIENTATION [None]
  - DYSGEUSIA [None]
  - HEADACHE [None]
  - VISION BLURRED [None]
  - VOMITING [None]
